FAERS Safety Report 17451354 (Version 1)
Quarter: 2020Q1

REPORT INFORMATION
  Report Type: Spontaneous
  Country: US (occurrence: US)
  Receive Date: 20200223
  Receipt Date: 20200223
  Transmission Date: 20200409
  Serious: Yes (Life-Threatening)
  Sender: FDA-Public Use
  Company Number: None

PATIENT
  Age: 41 Year
  Sex: Female
  Weight: 58.5 kg

DRUGS (1)
  1. DOTAREM [Suspect]
     Active Substance: GADOTERATE MEGLUMINE
     Dosage: ?          QUANTITY:1 INJECTION(S);?
     Route: 042

REACTIONS (2)
  - Anaphylactic shock [None]
  - Contrast media reaction [None]

NARRATIVE: CASE EVENT DATE: 20200220
